FAERS Safety Report 6132393-1 (Version None)
Quarter: 2009Q1

REPORT INFORMATION
  Report Type: 
  Country: None (occurrence: None)
  Receive Date: 20090325
  Receipt Date: 20090325
  Transmission Date: 20090719
  Serious: Yes (Hospitalization)
  Sender: FDA-Public Use
  Company Number: PHHO2004DK11709

PATIENT
  Sex: Female
  Weight: 76.2 kg

DRUGS (2)
  1. CGS 20267 T30748+ [Suspect]
     Indication: BREAST CANCER
     Dosage: 2.5 MG, QD
     Route: 048
     Dates: start: 19980715, end: 20010201
  2. ZOCOR [Concomitant]
     Indication: HYPERCHOLESTEROLAEMIA

REACTIONS (5)
  - ANGINA PECTORIS [None]
  - ANGIOGRAM [None]
  - CARDIAC FAILURE [None]
  - DYSPNOEA [None]
  - MYOCARDIAL ISCHAEMIA [None]
